FAERS Safety Report 24583562 (Version 2)
Quarter: 2024Q4

REPORT INFORMATION
  Report Type: Spontaneous
  Country: US (occurrence: US)
  Receive Date: 20241106
  Receipt Date: 20241108
  Transmission Date: 20250114
  Serious: Yes (Hospitalization, Other)
  Sender: ABBVIE
  Company Number: US-ABBVIE-5987931

PATIENT
  Age: 47 Year
  Sex: Female

DRUGS (1)
  1. RISANKIZUMAB [Suspect]
     Active Substance: RISANKIZUMAB
     Indication: Psoriasis
     Route: 058

REACTIONS (4)
  - Bronchitis [Unknown]
  - Hysterectomy [Unknown]
  - Rash papular [Unknown]
  - Formication [Unknown]

NARRATIVE: CASE EVENT DATE: 20241001
